FAERS Safety Report 8383580-3 (Version None)
Quarter: 2012Q1

REPORT INFORMATION
  Report Type: 
  Country: None (occurrence: None)
  Receive Date: 20120323
  Receipt Date: 20110321
  Transmission Date: 20120608
  Serious: Yes (Disabling)
  Sender: FDA-Public Use
  Company Number: 163-21880-11032603

PATIENT
  Age: 69 Year
  Sex: Male

DRUGS (2)
  1. ENALAPRIL MALEATE [Concomitant]
  2. REVLIMID [Suspect]
     Indication: MULTIPLE MYELOMA
     Dosage: 25 MG, DAILY FOR 21 DAYS, PO
     Route: 048
     Dates: start: 20110217

REACTIONS (2)
  - ANAEMIA [None]
  - COUGH [None]
